FAERS Safety Report 16671722 (Version 1)
Quarter: 2019Q3

REPORT INFORMATION
  Report Type: Spontaneous
  Country: US (occurrence: US)
  Receive Date: 20190806
  Receipt Date: 20190806
  Transmission Date: 20191004
  Serious: Yes (Hospitalization, Other)
  Sender: FDA-Public Use
  Company Number: US-ACCORD-150328

PATIENT
  Age: 75 Year
  Sex: Male

DRUGS (2)
  1. GEMCITABINE/GEMCITABINE HYDROCHLORIDE [Suspect]
     Active Substance: GEMCITABINE\GEMCITABINE HYDROCHLORIDE
     Indication: ADENOCARCINOMA PANCREAS
     Dosage: AS 1,862 MG ON DAY 1, 8, AND 15 ON A 28-DAY CYCLE FOR 6 CYCLES
  2. CAPECITABINE. [Suspect]
     Active Substance: CAPECITABINE
     Indication: ADENOCARCINOMA PANCREAS
     Dosage: AS 1,150 MG BID ON DAYS 1-21
     Route: 048

REACTIONS (10)
  - Orthostatic hypotension [Unknown]
  - Hypoxia [Unknown]
  - Respiratory failure [Unknown]
  - Fall [Unknown]
  - Dizziness [Unknown]
  - Respiratory distress [Unknown]
  - Pulseless electrical activity [Unknown]
  - Pulmonary embolism [Unknown]
  - Syncope [Unknown]
  - Pulmonary oedema [Unknown]
